FAERS Safety Report 25095554 (Version 1)
Quarter: 2025Q1

REPORT INFORMATION
  Report Type: Report from Study
  Country: CA (occurrence: CA)
  Receive Date: 20250319
  Receipt Date: 20250319
  Transmission Date: 20250408
  Serious: Yes (Other)
  Sender: ABBVIE
  Company Number: CA-ABBVIE-6179215

PATIENT
  Sex: Male

DRUGS (1)
  1. SKYRIZI [Suspect]
     Active Substance: RISANKIZUMAB-RZAA
     Indication: Crohn^s disease
     Route: 042

REACTIONS (13)
  - Bladder cancer [Unknown]
  - Tooth abscess [Not Recovered/Not Resolved]
  - Dysgeusia [Unknown]
  - Bowel movement irregularity [Unknown]
  - Therapeutic response shortened [Unknown]
  - Arthralgia [Unknown]
  - Pain [Unknown]
  - Feeling abnormal [Unknown]
  - Abdominal pain [Unknown]
  - Rash pruritic [Unknown]
  - Skin abrasion [Unknown]
  - Fistula [Unknown]
  - Drain placement [Unknown]
